FAERS Safety Report 8549100-5 (Version None)
Quarter: 2012Q3

REPORT INFORMATION
  Report Type: 
  Country: None (occurrence: None)
  Receive Date: 20120730
  Receipt Date: 20120725
  Transmission Date: 20120928
  Serious: No
  Sender: FDA-Public Use
  Company Number: US-PFIZER INC-2012180081

PATIENT
  Sex: Male
  Weight: 93.424 kg

DRUGS (9)
  1. SUTENT [Suspect]
     Indication: RENAL CANCER METASTATIC
     Dosage: 42 DAY CYCLE
     Dates: start: 20120720
  2. AMLODIPINE [Concomitant]
     Dosage: UNK
  3. INDAPAMIDE [Concomitant]
     Dosage: UNK
  4. JANUVIA [Concomitant]
     Dosage: UNK
  5. ASPIRIN [Concomitant]
     Dosage: 81 MG, DAILY
  6. TYLENOL [Concomitant]
     Indication: PAIN
     Dosage: 325 MG, AS NEEDED
  7. HYDROCODONE [Concomitant]
     Indication: PAIN
     Dosage: 10 MG, AS NEEDED
  8. SERTRALINE [Concomitant]
     Dosage: UNK
  9. TIZANIDINE [Concomitant]
     Indication: MUSCLE SPASMS
     Dosage: 2 MG, AS NEEDED

REACTIONS (3)
  - DISEASE PROGRESSION [None]
  - RENAL CANCER METASTATIC [None]
  - ABDOMINAL DISCOMFORT [None]
